FAERS Safety Report 4864961-9 (Version None)
Quarter: 2005Q4

REPORT INFORMATION
  Report Type: 
  Country: None (occurrence: None)
  Receive Date: 20051208
  Receipt Date: 20051128
  Transmission Date: 20060501
  Serious: Yes (Death, Hospitalization)
  Sender: FDA-Public Use
  Company Number: SAGL-ZLB/05/67/UNK

PATIENT
  Age: 33 Year
  Sex: Female
  Weight: 42 kg

DRUGS (10)
  1. SANDOGLOBULIN [Suspect]
     Indication: MYASTHENIA GRAVIS
     Dosage: 18 G DAILY IV
     Route: 042
     Dates: start: 20050503, end: 20050503
  2. PHYSOSTIGMINE [Concomitant]
  3. FOSAMAX [Concomitant]
  4. LANSOPRAZOLE [Concomitant]
  5. PREDNISOLONE [Concomitant]
  6. ANTI-ASTHMATICS [Concomitant]
  7. PLASMA SUBSTITUTES AND PERFUSION SOLUTIONS [Concomitant]
  8. CEFTRIAXONE [Concomitant]
  9. CYCLIZINE [Concomitant]
  10. MYCOPHENOLATE MOFETIL [Concomitant]

REACTIONS (12)
  - ARRHYTHMIA [None]
  - CARDIAC OUTPUT DECREASED [None]
  - CORONARY ARTERY STENOSIS [None]
  - DIZZINESS [None]
  - FATIGUE [None]
  - HYPOTENSION [None]
  - INFECTION [None]
  - MALAISE [None]
  - MYOCARDIAL INFARCTION [None]
  - RASH [None]
  - URINE OUTPUT DECREASED [None]
  - VENTRICULAR TACHYCARDIA [None]
